FAERS Safety Report 6509139-8 (Version None)
Quarter: 2009Q4

REPORT INFORMATION
  Report Type: 
  Country: None (occurrence: None)
  Receive Date: 20091221
  Receipt Date: 20091109
  Transmission Date: 20100525
  Serious: Yes (Other)
  Sender: FDA-Public Use
  Company Number: US-PFIZER INC-2009305443

PATIENT
  Sex: Male
  Weight: 90.703 kg

DRUGS (6)
  1. CHANTIX [Suspect]
     Indication: SMOKING CESSATION THERAPY
     Dosage: FREQUENCY: 2X/DAY,
     Route: 048
     Dates: start: 20091001
  2. GLIPIZIDE [Concomitant]
     Indication: DIABETIC NEUROPATHY
     Dosage: FREQUENCY: 2X/DAY,
     Route: 048
  3. SIMVASTATIN [Concomitant]
     Indication: BLOOD CHOLESTEROL INCREASED
     Dosage: 80 MG, 1X/DAY
     Route: 048
  4. DOXAZOSIN [Concomitant]
     Indication: BENIGN PROSTATIC HYPERPLASIA
     Route: 048
  5. ATENOLOL [Concomitant]
     Route: 048
  6. PROTONIX [Concomitant]
     Indication: GASTROOESOPHAGEAL REFLUX DISEASE
     Route: 048

REACTIONS (2)
  - BLOOD GLUCOSE INCREASED [None]
  - INSOMNIA [None]
